FAERS Safety Report 14490753 (Version 1)
Quarter: 2018Q1

REPORT INFORMATION
  Report Type: Spontaneous
  Country: US (occurrence: US)
  Receive Date: 20180206
  Receipt Date: 20180206
  Transmission Date: 20180509
  Serious: Yes (Hospitalization, Other)
  Sender: FDA-Public Use
  Company Number: US-AUROBINDO-AUR-APL-2018-004310

PATIENT
  Age: 63 Year
  Sex: Male

DRUGS (6)
  1. LEFLUNOMIDE. [Suspect]
     Active Substance: LEFLUNOMIDE
     Indication: IMMUNOSUPPRESSANT DRUG THERAPY
     Dosage: 20 MG, DAILY
     Route: 065
  2. PREDNISONE. [Suspect]
     Active Substance: PREDNISONE
     Indication: IMMUNOSUPPRESSANT DRUG LEVEL
     Route: 065
  3. TACROLIMUS. [Suspect]
     Active Substance: TACROLIMUS
     Indication: IMMUNOSUPPRESSANT DRUG THERAPY
     Route: 065
  4. LEFLUNOMIDE. [Suspect]
     Active Substance: LEFLUNOMIDE
     Dosage: 60 UNK, UNK
  5. AZATHIOPRINE. [Suspect]
     Active Substance: AZATHIOPRINE
     Indication: IMMUNOSUPPRESSANT DRUG THERAPY
     Route: 065
  6. LEFLUNOMIDE. [Suspect]
     Active Substance: LEFLUNOMIDE
     Dosage: 40 MG, DAILY

REACTIONS (13)
  - Chronic kidney disease [Unknown]
  - Abdominal pain [Unknown]
  - Polyomavirus-associated nephropathy [Unknown]
  - Prostate cancer metastatic [Unknown]
  - Headache [Unknown]
  - Pyrexia [Unknown]
  - Weight decreased [Unknown]
  - Liver function test abnormal [Unknown]
  - BK virus infection [Unknown]
  - Malaise [Unknown]
  - Bladder transitional cell carcinoma metastatic [Unknown]
  - Metastases to liver [Unknown]
  - Confusional state [Unknown]
